FAERS Safety Report 14714861 (Version 1)
Quarter: 2018Q2

REPORT INFORMATION
  Report Type: Report from Study
  Country: JP (occurrence: JP)
  Receive Date: 20180404
  Receipt Date: 20180404
  Transmission Date: 20180711
  Serious: Yes (Hospitalization, Other)
  Sender: FDA-Public Use
  Company Number: JP-ASTRAZENECA-2018SE42085

PATIENT
  Age: 22609 Day
  Sex: Male

DRUGS (17)
  1. MAGNESIUM SULFATE. [Concomitant]
     Active Substance: MAGNESIUM SULFATE
     Indication: RENAL FAILURE
     Route: 042
     Dates: start: 20180322, end: 20180322
  2. MANNITOL. [Concomitant]
     Active Substance: MANNITOL
     Indication: RENAL FAILURE
     Route: 042
     Dates: start: 20180322, end: 20180322
  3. VASOLAN [Concomitant]
     Active Substance: VERAPAMIL HYDROCHLORIDE
     Dosage: 40.0MG AS REQUIRED
     Route: 048
     Dates: start: 20180323
  4. ETOPOSIDE. [Suspect]
     Active Substance: ETOPOSIDE
     Indication: SMALL CELL LUNG CANCER
     Dosage: 100.0MG/M2 ONCE/SINGLE ADMINISTRATION
     Route: 065
     Dates: start: 20180324, end: 20180324
  5. CISPLATIN. [Suspect]
     Active Substance: CISPLATIN
     Indication: SMALL CELL LUNG CANCER
     Dosage: 80.0MG/M2 ONCE/SINGLE ADMINISTRATION
     Route: 065
     Dates: start: 20180322, end: 20180322
  6. BISOPROLOL [Concomitant]
     Active Substance: BISOPROLOL
     Indication: ATRIAL TACHYCARDIA
     Route: 003
     Dates: start: 20180324, end: 20180328
  7. HEPARIN SODIUM. [Concomitant]
     Active Substance: HEPARIN SODIUM
     Indication: THROMBOSIS PROPHYLAXIS
     Route: 042
     Dates: start: 20180228
  8. DURVALUMAB. [Suspect]
     Active Substance: DURVALUMAB
     Indication: SMALL CELL LUNG CANCER
     Dosage: 1500.0MG ONCE/SINGLE ADMINISTRATION
     Route: 042
     Dates: start: 20180322, end: 20180322
  9. ALOXI [Concomitant]
     Active Substance: PALONOSETRON HYDROCHLORIDE
     Indication: PREMEDICATION
     Route: 042
     Dates: start: 20180322, end: 20180322
  10. ETOPOSIDE. [Suspect]
     Active Substance: ETOPOSIDE
     Indication: SMALL CELL LUNG CANCER
     Dosage: 100.0MG/M2 ONCE/SINGLE ADMINISTRATION
     Route: 065
     Dates: start: 20180322, end: 20180322
  11. DEXART [Concomitant]
     Active Substance: DEXAMETHASONE SODIUM PHOSPHATE
     Indication: PREMEDICATION
     Route: 042
     Dates: start: 20180323, end: 20180324
  12. EMEND [Concomitant]
     Active Substance: APREPITANT
     Indication: NAUSEA
     Route: 048
     Dates: start: 20180322, end: 20180322
  13. EMEND [Concomitant]
     Active Substance: APREPITANT
     Indication: NAUSEA
     Route: 048
     Dates: start: 20180323, end: 20180324
  14. DEXART [Concomitant]
     Active Substance: DEXAMETHASONE SODIUM PHOSPHATE
     Indication: PREMEDICATION
     Route: 042
     Dates: start: 20180322, end: 20180322
  15. SOLDEM 3A [Concomitant]
     Active Substance: CARBOHYDRATES\POTASSIUM CHLORIDE\SODIUM CHLORIDE\SODIUM LACTATE
     Indication: RENAL FAILURE
     Route: 042
     Dates: start: 20180322, end: 20180322
  16. FUROSEMIDE. [Concomitant]
     Active Substance: FUROSEMIDE
     Indication: RENAL FAILURE
     Dosage: 20.0MG ONCE/SINGLE ADMINISTRATION
     Route: 042
     Dates: start: 20180322, end: 20180322
  17. ETOPOSIDE. [Suspect]
     Active Substance: ETOPOSIDE
     Indication: SMALL CELL LUNG CANCER
     Dosage: 100.0MG/M2 ONCE/SINGLE ADMINISTRATION
     Route: 065
     Dates: start: 20180323, end: 20180323

REACTIONS (1)
  - Iliac artery embolism [Recovered/Resolved]

NARRATIVE: CASE EVENT DATE: 20180328
